FAERS Safety Report 13636545 (Version 1)
Quarter: 2017Q2

REPORT INFORMATION
  Report Type: Spontaneous
  Country: US (occurrence: US)
  Receive Date: 20170531
  Receipt Date: 20170531
  Transmission Date: 20170830
  Serious: No
  Sender: FDA-Public Use
  Company Number: US-ASTELLAS-1839060

PATIENT
  Age: 69 Year
  Sex: Male

DRUGS (8)
  1. NAPROXEN. [Suspect]
     Active Substance: NAPROXEN
     Indication: PRODUCT USED FOR UNKNOWN INDICATION
     Route: 065
  2. FEXOFENADINE HCL [Concomitant]
     Active Substance: FEXOFENADINE HYDROCHLORIDE
  3. SIMVASTATIN. [Concomitant]
     Active Substance: SIMVASTATIN
  4. ALEVE [Concomitant]
     Active Substance: NAPROXEN SODIUM
  5. DOXYCYCLINE HYCLATE. [Concomitant]
     Active Substance: DOXYCYCLINE HYCLATE
  6. CLINDAMYCIN PHOSPHATE. [Concomitant]
     Active Substance: CLINDAMYCIN PHOSPHATE
  7. LISINOPRIL. [Concomitant]
     Active Substance: LISINOPRIL
  8. TARCEVA [Suspect]
     Active Substance: ERLOTINIB HYDROCHLORIDE
     Indication: LUNG NEOPLASM MALIGNANT
     Dosage: EVERY MORNING, QAM
     Route: 048
     Dates: start: 20160926

REACTIONS (7)
  - Pruritus [Unknown]
  - Blister [Unknown]
  - Dry skin [Unknown]
  - Rash [Unknown]
  - Dry eye [Unknown]
  - Rash pruritic [Unknown]
  - Fatigue [Unknown]

NARRATIVE: CASE EVENT DATE: 20161024
